FAERS Safety Report 19390637 (Version 1)
Quarter: 2021Q2

REPORT INFORMATION
  Report Type: Report from Study
  Country: None (occurrence: TR)
  Receive Date: 20210608
  Receipt Date: 20210608
  Transmission Date: 20210717
  Serious: Yes (Death, Hospitalization)
  Sender: FDA-Public Use
  Company Number: TR-ABBVIE-21K-161-3940577-00

PATIENT
  Sex: Male
  Weight: 80 kg

DRUGS (5)
  1. DUODOPA [Suspect]
     Active Substance: CARBIDOPA\LEVODOPA
     Indication: PARKINSON^S DISEASE
     Dosage: MORNING DOSE (ML): 5.80 CONTINUOUS DOSE (ML): 5.20 EXTRA DOSE (ML): 2.00
     Route: 050
     Dates: start: 20150513
  2. COVID?19 VACCINE [Concomitant]
     Indication: COVID-19 IMMUNISATION
     Dosage: FIRST DOSE WAS ADMINISTERED
     Route: 030
  3. EXELON PATCH [Concomitant]
     Active Substance: RIVASTIGMINE
     Indication: DEMENTIA
     Dosage: EXELON PATCH
     Route: 062
  4. DUODOPA [Suspect]
     Active Substance: CARBIDOPA\LEVODOPA
  5. COVID?19 VACCINE [Concomitant]
     Dosage: SECOND DOSE WAS ADMINISTERED
     Route: 030

REACTIONS (1)
  - COVID-19 [Fatal]
